FAERS Safety Report 4992399-2 (Version None)
Quarter: 2006Q2

REPORT INFORMATION
  Report Type: 
  Country: None (occurrence: None)
  Receive Date: 20060502
  Receipt Date: 20050913
  Transmission Date: 20061013
  Serious: Yes (Hospitalization, Other)
  Sender: FDA-Public Use
  Company Number: 2006047237

PATIENT
  Age: 66 Year
  Sex: Female

DRUGS (1)
  1. CELEBREX [Suspect]
     Indication: SHOULDER OPERATION
     Dosage: UNKNOWN
     Route: 065
     Dates: start: 20030320, end: 20030331

REACTIONS (13)
  - ANGIONEUROTIC OEDEMA [None]
  - CHRONIC OBSTRUCTIVE PULMONARY DISEASE [None]
  - CONDITION AGGRAVATED [None]
  - COUGH [None]
  - DRUG HYPERSENSITIVITY [None]
  - DYSPNOEA [None]
  - PHARYNGEAL ERYTHEMA [None]
  - PHARYNGEAL OEDEMA [None]
  - RASH MACULAR [None]
  - RESPIRATORY DISTRESS [None]
  - STEVENS-JOHNSON SYNDROME [None]
  - SWELLING FACE [None]
  - URTICARIA [None]
